FAERS Safety Report 7692382-2 (Version None)
Quarter: 2011Q3

REPORT INFORMATION
  Report Type: 
  Country: None (occurrence: None)
  Receive Date: 20110818
  Receipt Date: 20110812
  Transmission Date: 20111222
  Serious: Yes (Other)
  Sender: FDA-Public Use
  Company Number: US-B.I. PHARMACEUTICALS,INC./RIDGEFIELD-2011-BP-19921BP

PATIENT
  Sex: Female

DRUGS (6)
  1. COREG [Concomitant]
     Indication: HYPERTENSION
     Route: 048
  2. RAMIPRIL [Concomitant]
     Indication: HYPERTENSION
     Route: 048
  3. PREMARIN [Concomitant]
     Route: 048
  4. HYDROCODONE [Concomitant]
     Route: 048
  5. LEVOXYL [Concomitant]
     Indication: HYPOTHYROIDISM
     Route: 048
  6. PRADAXA [Suspect]
     Indication: ATRIAL FIBRILLATION
     Dosage: 300 MG
     Route: 048
     Dates: start: 20110811, end: 20110812

REACTIONS (2)
  - PAIN [None]
  - BLOOD PRESSURE INCREASED [None]
